FAERS Safety Report 19032539 (Version 1)
Quarter: 2021Q1

REPORT INFORMATION
  Report Type: Spontaneous
  Country: GB (occurrence: GB)
  Receive Date: 20210319
  Receipt Date: 20210319
  Transmission Date: 20210420
  Serious: Yes (Other)
  Sender: FDA-Public Use
  Company Number: GB-BAYER-2021-102492

PATIENT
  Age: 47 Year
  Sex: Female
  Weight: 53 kg

DRUGS (1)
  1. GADOVIST [Suspect]
     Active Substance: GADOBUTROL
     Indication: SCAN WITH CONTRAST
     Dosage: 5 ML, UNK
     Route: 051
     Dates: start: 20210302

REACTIONS (12)
  - Erythema [Unknown]
  - Swelling face [Unknown]
  - Swelling of eyelid [Unknown]
  - Dermatitis allergic [Not Recovered/Not Resolved]
  - Fatigue [Unknown]
  - Sensitive skin [Unknown]
  - Pruritus [Unknown]
  - Dry skin [Unknown]
  - Temperature intolerance [Unknown]
  - Feeling cold [Unknown]
  - Feeling hot [Unknown]
  - Hunger [Unknown]

NARRATIVE: CASE EVENT DATE: 20210302
